FAERS Safety Report 9776854 (Version 4)
Quarter: 2014Q1

REPORT INFORMATION
  Report Type: Report from Study
  Country: AU (occurrence: AU)
  Receive Date: 20131221
  Receipt Date: 20140131
  Transmission Date: 20141002
  Serious: Yes (Hospitalization, Other)
  Sender: FDA-Public Use
  Company Number: PHHY2013AU149250

PATIENT
  Age: 72 Year
  Sex: Male

DRUGS (5)
  1. ACLASTA [Suspect]
     Indication: OSTEOPOROSIS
     Dosage: 5 MG/100ML ONCE YEAR
     Route: 042
     Dates: start: 20121221
  2. OZMEP [Concomitant]
     Dosage: 20 MG 1 MANE
  3. ATROVENT [Concomitant]
     Dosage: 21 UG/ PUFF 200 PUFFS X 2 METERED AEROSOL 2 QID
  4. VENTOLIN [Concomitant]
     Dosage: 100 UG, DOSE 200 X 2 INHALER 2Q4H
  5. SERETIDE [Concomitant]
     Dosage: 60 DOSES POWDER FOR INHALATION 1 BD (500/ 50)

REACTIONS (11)
  - Chronic obstructive pulmonary disease [Recovering/Resolving]
  - Pneumonia [Recovering/Resolving]
  - Myocardial ischaemia [Recovering/Resolving]
  - Upper respiratory tract infection [Recovered/Resolved]
  - Haemorrhoids [Recovered/Resolved]
  - Large intestine polyp [Recovered/Resolved]
  - Urinary tract infection [Recovered/Resolved]
  - Dermatitis atopic [Not Recovered/Not Resolved]
  - Actinic keratosis [Not Recovered/Not Resolved]
  - Pulmonary mass [Unknown]
  - Dyspnoea [Unknown]
